FAERS Safety Report 8452702-8 (Version None)
Quarter: 2012Q2

REPORT INFORMATION
  Report Type: 
  Country: None (occurrence: None)
  Receive Date: 20120620
  Receipt Date: 20120423
  Transmission Date: 20120825
  Serious: No
  Sender: FDA-Public Use
  Company Number: US-VERTEX PHARMACEUTICALS INC.-AE-2012-005852

PATIENT
  Sex: Male
  Weight: 89.892 kg

DRUGS (6)
  1. PEGASYS [Concomitant]
     Indication: HEPATITIS C
     Route: 058
     Dates: start: 20120202
  2. PAXIL [Concomitant]
     Route: 048
  3. LEVOXYL [Concomitant]
     Route: 048
  4. ADAVIR [Concomitant]
  5. RIBASPHERE [Concomitant]
     Indication: HEPATITIS C
     Route: 048
     Dates: start: 20120202
  6. INCIVEK [Suspect]
     Indication: HEPATITIS C
     Route: 048
     Dates: start: 20120202

REACTIONS (1)
  - ALOPECIA [None]
